FAERS Safety Report 11251052 (Version 1)
Quarter: 2015Q3

REPORT INFORMATION
  Report Type: Spontaneous
  Country: US (occurrence: US)
  Receive Date: 20150708
  Receipt Date: 20150708
  Transmission Date: 20151125
  Serious: No
  Sender: FDA-Public Use
  Company Number: US-ELI_LILLY_AND_COMPANY-US201107006714

PATIENT
  Sex: Female

DRUGS (18)
  1. PROTONIX [Concomitant]
     Active Substance: PANTOPRAZOLE SODIUM
     Dosage: 40 MG, QD
  2. ASA [Concomitant]
     Active Substance: ASPIRIN
     Indication: CEREBROVASCULAR ACCIDENT
     Dosage: 81 MG, UNK
     Dates: start: 2006
  3. BENTYL [Concomitant]
     Active Substance: DICYCLOMINE HYDROCHLORIDE
     Dosage: 10 MG, QID
  4. SYMBYAX [Suspect]
     Active Substance: FLUOXETINE HYDROCHLORIDE\OLANZAPINE
     Indication: BIPOLAR DISORDER
     Dosage: 6/25, UNKNOWN
     Dates: start: 20110703, end: 20110711
  5. SYMBYAX [Suspect]
     Active Substance: FLUOXETINE HYDROCHLORIDE\OLANZAPINE
     Dosage: 12/50, UNKNOWN
     Dates: start: 20110711, end: 20110721
  6. LIDOCAINE. [Concomitant]
     Active Substance: LIDOCAINE
     Dosage: UNK, EVERY 28 DAYS AS NEEDED
  7. TRIMEX [Concomitant]
     Indication: MIGRAINE
     Dosage: UNK, PRN
  8. XANAX [Concomitant]
     Active Substance: ALPRAZOLAM
     Dosage: 2 MG, TID
  9. ADVAIR HFA [Concomitant]
     Active Substance: FLUTICASONE PROPIONATE\SALMETEROL XINAFOATE
     Dosage: 250/50 1 PUFF, BID
  10. MULTIVITAMIN [Concomitant]
     Active Substance: VITAMINS
  11. ZANAFLEX [Concomitant]
     Active Substance: TIZANIDINE HYDROCHLORIDE
     Dosage: 4 MG, QID
  12. NEURONTIN [Concomitant]
     Active Substance: GABAPENTIN
     Dosage: 400 MG, QID
  13. RELAFEN [Concomitant]
     Active Substance: NABUMETONE
     Dosage: 500 MG, BID
  14. RITALIN [Concomitant]
     Active Substance: METHYLPHENIDATE HYDROCHLORIDE
     Dosage: 40 MG, QD
  15. RITALIN [Concomitant]
     Active Substance: METHYLPHENIDATE HYDROCHLORIDE
     Dosage: 20 MG, PRN
  16. NORCO [Concomitant]
     Active Substance: ACETAMINOPHEN\HYDROCODONE BITARTRATE
     Dosage: 10/325, QID
  17. TOPAMAX [Concomitant]
     Active Substance: TOPIRAMATE
     Indication: MIGRAINE
     Dosage: 100 MG, BID
  18. ZOCOR [Concomitant]
     Active Substance: SIMVASTATIN
     Dosage: 40 MG, QD

REACTIONS (4)
  - Therapeutic response decreased [Unknown]
  - Thinking abnormal [Unknown]
  - Mood altered [Unknown]
  - Frustration [Unknown]
